FAERS Safety Report 25001040 (Version 1)
Quarter: 2025Q1

REPORT INFORMATION
  Report Type: Spontaneous
  Country: US (occurrence: US)
  Receive Date: 20250222
  Receipt Date: 20250222
  Transmission Date: 20250408
  Serious: No
  Sender: SANOFI AVENTIS
  Company Number: US-SA-2025SA053012

PATIENT
  Age: 32 Year
  Sex: Female

DRUGS (1)
  1. DUPIXENT [Suspect]
     Active Substance: DUPILUMAB
     Indication: Dermatitis atopic
     Dosage: 300 MG, QOW
     Route: 058

REACTIONS (7)
  - Lymphadenopathy [Unknown]
  - Hand dermatitis [Unknown]
  - Rash vesicular [Unknown]
  - Injection site discolouration [Unknown]
  - Vision blurred [Unknown]
  - Ocular hyperaemia [Unknown]
  - Rash [Not Recovered/Not Resolved]
